FAERS Safety Report 4862595-3 (Version None)
Quarter: 2005Q4

REPORT INFORMATION
  Report Type: 
  Country: None (occurrence: None)
  Receive Date: 20051221
  Receipt Date: 20051209
  Transmission Date: 20060501
  Serious: Yes (Hospitalization)
  Sender: FDA-Public Use
  Company Number: FR-ROCHE-428071

PATIENT
  Age: 82 Year
  Sex: Male

DRUGS (6)
  1. VALIUM [Suspect]
     Indication: SENILE DEMENTIA
     Dosage: STRENGTH REPORTED AS 2MG/5ML
     Route: 048
     Dates: start: 20050917, end: 20050928
  2. LEPONEX [Suspect]
     Indication: SENILE DEMENTIA
     Route: 048
     Dates: start: 20050802
  3. SEROPRAM [Suspect]
     Indication: SENILE DEMENTIA
     Route: 048
     Dates: start: 20050802
  4. NOCTAMIDE [Suspect]
     Indication: SENILE DEMENTIA
     Route: 048
     Dates: start: 20050923, end: 20050928
  5. STILNOX [Suspect]
     Indication: SENILE DEMENTIA
     Route: 048
     Dates: start: 20050802
  6. XANAX [Concomitant]
     Indication: SENILE DEMENTIA
     Route: 048
     Dates: start: 20050928

REACTIONS (1)
  - MENINGITIS ASEPTIC [None]
